FAERS Safety Report 7904051-1 (Version None)
Quarter: 2011Q4

REPORT INFORMATION
  Report Type: 
  Country: None (occurrence: None)
  Receive Date: 20111109
  Receipt Date: 20111031
  Transmission Date: 20120403
  Serious: Yes (Other)
  Sender: FDA-Public Use
  Company Number: US-ASTRAZENECA-2010SE35924

PATIENT
  Age: 63 Year
  Sex: Female
  Weight: 68.9 kg

DRUGS (22)
  1. FOLIC ACID [Concomitant]
  2. ASPIRIN [Concomitant]
  3. SEROQUEL [Suspect]
     Indication: DEPRESSION
     Route: 048
     Dates: start: 20030101
  4. SEROQUEL [Suspect]
     Route: 048
  5. SEROQUEL [Suspect]
     Route: 048
  6. SEROQUEL [Suspect]
     Route: 048
  7. TOPAMAX [Concomitant]
     Indication: CONVULSION
     Route: 048
  8. PROTONIX [Concomitant]
     Indication: ABDOMINAL DISCOMFORT
     Dosage: DAILY
     Route: 048
  9. SEROQUEL [Suspect]
     Indication: BIPOLAR DISORDER
     Route: 048
     Dates: start: 20030101
  10. SEROQUEL [Suspect]
     Route: 048
  11. SEROQUEL [Suspect]
     Route: 048
  12. SEROQUEL [Suspect]
     Route: 048
  13. CLONAZEPAM [Concomitant]
  14. SEROQUEL [Suspect]
     Indication: ANXIETY
     Route: 048
     Dates: start: 20030101
  15. SEROQUEL [Suspect]
     Route: 048
  16. LEVOXTHYROXIL [Concomitant]
     Indication: HYPOTHYROIDISM
     Dosage: DAILY
     Route: 048
     Dates: start: 20080101
  17. LISINOPRIL [Concomitant]
     Indication: BLOOD PRESSURE ABNORMAL
     Route: 048
  18. SEROQUEL [Suspect]
     Route: 048
  19. SEROQUEL [Suspect]
     Route: 048
  20. OMEPRAZOLE [Concomitant]
  21. CELEXA [Concomitant]
     Indication: DEPRESSION
  22. RESTERIL [Concomitant]
     Indication: SLEEP DISORDER

REACTIONS (20)
  - INSOMNIA [None]
  - ANXIETY [None]
  - INAPPROPRIATE SCHEDULE OF DRUG ADMINISTRATION [None]
  - TONGUE BITING [None]
  - MALAISE [None]
  - PANIC ATTACK [None]
  - ORAL PAIN [None]
  - NAUSEA [None]
  - BRAIN NEOPLASM [None]
  - CONVULSION [None]
  - FALL [None]
  - CONTUSION [None]
  - INCORRECT DOSE ADMINISTERED [None]
  - VIRAL INFECTION [None]
  - LOWER LIMB FRACTURE [None]
  - CARDIAC DISORDER [None]
  - DRUG WITHDRAWAL SYNDROME [None]
  - DRUG DOSE OMISSION [None]
  - ANKLE FRACTURE [None]
  - MUSCLE TWITCHING [None]
